FAERS Safety Report 5636470-0 (Version None)
Quarter: 2008Q1

REPORT INFORMATION
  Report Type: 
  Country: None (occurrence: None)
  Receive Date: 20080220
  Receipt Date: 20080205
  Transmission Date: 20080703
  Serious: Yes (Hospitalization)
  Sender: FDA-Public Use
  Company Number: 8029147

PATIENT
  Age: 16 Year
  Sex: Male
  Weight: 70 kg

DRUGS (10)
  1. KEPPRA [Suspect]
     Indication: CONVULSION
     Dosage: 1.5 G 3/D PO
     Route: 048
     Dates: start: 20071115, end: 20080110
  2. EPILIM [Concomitant]
  3. CLOBAZAM [Concomitant]
  4. CO-TRIMOXAZOLE [Concomitant]
  5. EURO EWING VAC [Concomitant]
  6. ADRIAMYCIN PFS [Concomitant]
  7. VINCRISTINE [Concomitant]
  8. VIDE [Concomitant]
  9. CYCLIZINE [Concomitant]
  10. GRANISETRON [Concomitant]

REACTIONS (5)
  - NAUSEA [None]
  - NEUTROPENIA [None]
  - PANCREATITIS [None]
  - PLEURAL EFFUSION [None]
  - VOMITING [None]
